FAERS Safety Report 8764972 (Version 1)
Quarter: 2012Q4

REPORT INFORMATION
  Report Type: 
  Country: US (occurrence: US)
  Receive Date: 20120902
  Receipt Date: 20120902
  Transmission Date: 20130627
  Serious: Yes (Other)
  Sender: FDA-Public Use
  Company Number: US-AMGEN-USASP2012054910

PATIENT
  Sex: Female

DRUGS (3)
  1. NEULASTA [Suspect]
     Indication: NEUTROPENIA
     Dosage: UNK
     Dates: start: 20120816
  2. NEUPOGEN [Suspect]
     Indication: NEUTROPENIA
     Dosage: UNK
     Dates: start: 20120822
  3. CISPLATIN [Concomitant]
     Indication: LUNG NEOPLASM MALIGNANT

REACTIONS (2)
  - Swollen tongue [Recovered/Resolved]
  - Drug effect incomplete [Unknown]
